FAERS Safety Report 4289235-9 (Version None)
Quarter: 2004Q1

REPORT INFORMATION
  Report Type: 
  Country: None (occurrence: None)
  Receive Date: 20040206
  Receipt Date: 20040129
  Transmission Date: 20041129
  Serious: Yes (Hospitalization)
  Sender: FDA-Public Use
  Company Number: NSADSS2002025610

PATIENT
  Sex: 0

DRUGS (1)
  1. LEVAQUIN [Suspect]
     Indication: URINARY TRACT INFECTION
     Dosage: 600 MG, ORAL
     Route: 048
     Dates: start: 20020719, end: 20020719

REACTIONS (4)
  - CROHN'S DISEASE [None]
  - FISTULA [None]
  - INFLUENZA LIKE ILLNESS [None]
  - LARGE INTESTINAL ULCER [None]
